FAERS Safety Report 5558385-9 (Version None)
Quarter: 2007Q4

REPORT INFORMATION
  Report Type: 
  Country: None (occurrence: None)
  Receive Date: 20071214
  Receipt Date: 20071203
  Transmission Date: 20080405
  Serious: Yes (Other)
  Sender: FDA-Public Use
  Company Number: BR-PFIZER INC-2007102397

PATIENT
  Sex: Male

DRUGS (7)
  1. VIAGRA [Suspect]
     Indication: ERECTILE DYSFUNCTION
     Route: 048
  2. ENALAPRIL MALEATE [Concomitant]
     Route: 048
  3. COZAAR [Concomitant]
     Route: 048
  4. METFORMIN HCL [Concomitant]
     Route: 048
  5. MODURETIC 5-50 [Concomitant]
     Route: 048
  6. LINSEED OIL [Concomitant]
  7. ALL OTHER THERAPEUTIC PRODUCTS [Concomitant]

REACTIONS (2)
  - DRUG INEFFECTIVE [None]
  - SYSTEMIC LUPUS ERYTHEMATOSUS [None]
